FAERS Safety Report 12423027 (Version 1)
Quarter: 2016Q2

REPORT INFORMATION
  Report Type: Spontaneous
  Country: US (occurrence: US)
  Receive Date: 20160601
  Receipt Date: 20160601
  Transmission Date: 20160815
  Serious: Yes (Other)
  Sender: FDA-Public Use
  Company Number: US-PFIZER INC-2016280385

PATIENT
  Age: 35 Year
  Sex: Male

DRUGS (4)
  1. CELEXA [Concomitant]
     Active Substance: CITALOPRAM HYDROBROMIDE
     Indication: ANXIETY
  2. VIAGRA [Suspect]
     Active Substance: SILDENAFIL CITRATE
     Dosage: 50 MG (HALF OF 100 MG), UNK
  3. CELEXA [Concomitant]
     Active Substance: CITALOPRAM HYDROBROMIDE
     Indication: DEPRESSION
     Dosage: UNK, DAILY
  4. COCAINE [Suspect]
     Active Substance: COCAINE
     Dosage: UNK

REACTIONS (6)
  - Somnolence [Unknown]
  - Priapism [Unknown]
  - Depression [Unknown]
  - Anxiety [Unknown]
  - Condition aggravated [Unknown]
  - Drug effect incomplete [Unknown]
